FAERS Safety Report 11048675 (Version 1)
Quarter: 2015Q2

REPORT INFORMATION
  Report Type: Spontaneous
  Country: CN (occurrence: CN)
  Receive Date: 20150420
  Receipt Date: 20150420
  Transmission Date: 20150821
  Serious: Yes (Hospitalization)
  Sender: FDA-Public Use
  Company Number: CN-JNJFOC-20150404833

PATIENT
  Age: 9 Month
  Sex: Female
  Weight: 9 kg

DRUGS (6)
  1. TYLENOL [Suspect]
     Active Substance: ACETAMINOPHEN
     Indication: PYREXIA
     Route: 048
     Dates: start: 20141009, end: 20141011
  2. HOUERHUAN XIAOYAN [Suspect]
     Active Substance: HERBALS
     Indication: PYREXIA
     Route: 048
     Dates: start: 20141009, end: 20141011
  3. TYLENOL [Suspect]
     Active Substance: ACETAMINOPHEN
     Indication: NASOPHARYNGITIS
     Route: 048
     Dates: start: 20141009, end: 20141011
  4. HOUERHUAN XIAOYAN [Suspect]
     Active Substance: HERBALS
     Indication: NASOPHARYNGITIS
     Route: 048
     Dates: start: 20141009, end: 20141011
  5. XIAOERRESUQING [Suspect]
     Active Substance: HERBALS
     Indication: NASOPHARYNGITIS
     Route: 048
     Dates: start: 20141009, end: 20141011
  6. XIAOERRESUQING [Suspect]
     Active Substance: HERBALS
     Indication: PYREXIA
     Route: 048
     Dates: start: 20141009, end: 20141011

REACTIONS (4)
  - Aspartate aminotransferase increased [None]
  - Liver function test abnormal [Recovering/Resolving]
  - Alanine aminotransferase increased [None]
  - Diarrhoea [Recovered/Resolved]

NARRATIVE: CASE EVENT DATE: 201410
